FAERS Safety Report 8782308 (Version 1)
Quarter: 2012Q4

REPORT INFORMATION
  Report Type: 
  Country: US (occurrence: US)
  Receive Date: 20120913
  Receipt Date: 20120913
  Transmission Date: 20130627
  Serious: No
  Sender: FDA-Public Use
  Company Number: US-VERTEX PHARMACEUTICAL INC.-2012-019998

PATIENT
  Sex: Male

DRUGS (9)
  1. VX-950 [Suspect]
     Indication: HEPATITIS C
     Dosage: 750 mg, tid
     Route: 048
  2. PEGASYS [Concomitant]
     Indication: HEPATITIS C
     Dosage: 180 ?g, UNK
  3. RIBASPHERE [Concomitant]
     Indication: HEPATITIS C
     Dosage: 200 mg, UNK
  4. LITHIUM [Concomitant]
     Dosage: 300 mg, UNK
  5. DEPAKOTE [Concomitant]
     Dosage: 500 mg, UNK
  6. ALBUTEROL                          /00139501/ [Concomitant]
     Dosage: 90 ?g, UNK
  7. VENTOLIN                           /00139501/ [Concomitant]
  8. ANTABUSE [Concomitant]
     Dosage: 250 mg, UNK
  9. SEROQUEL [Concomitant]
     Dosage: 200 mg, UNK

REACTIONS (3)
  - Anxiety [Unknown]
  - Anal pruritus [Unknown]
  - Anorectal discomfort [Unknown]
